FAERS Safety Report 17364078 (Version 1)
Quarter: 2020Q1

REPORT INFORMATION
  Report Type: Spontaneous
  Country: AU (occurrence: AU)
  Receive Date: 20200204
  Receipt Date: 20200204
  Transmission Date: 20200409
  Serious: Yes (Other)
  Sender: FDA-Public Use
  Company Number: AU-CIPLA LTD.-2020AU00673

PATIENT

DRUGS (4)
  1. MELOXICAM. [Suspect]
     Active Substance: MELOXICAM
     Indication: PELVIC NEOPLASM
  2. TAMOXIFEN [Suspect]
     Active Substance: TAMOXIFEN
     Indication: DESMOID TUMOUR
     Dosage: UNK
     Route: 065
  3. MELOXICAM. [Suspect]
     Active Substance: MELOXICAM
     Indication: DESMOID TUMOUR
     Dosage: UNK
     Route: 065
  4. TAMOXIFEN [Suspect]
     Active Substance: TAMOXIFEN
     Indication: PELVIC NEOPLASM

REACTIONS (4)
  - Drug intolerance [Unknown]
  - Malignant neoplasm progression [Unknown]
  - Off label use [Unknown]
  - Product use in unapproved indication [Unknown]
